FAERS Safety Report 14100380 (Version 3)
Quarter: 2017Q4

REPORT INFORMATION
  Report Type: Spontaneous
  Country: US (occurrence: US)
  Receive Date: 20171017
  Receipt Date: 20171101
  Transmission Date: 20180321
  Serious: Yes (Other)
  Sender: FDA-Public Use
  Company Number: US-ALLERGAN-1757721US

PATIENT
  Age: 5 Month
  Sex: Female

DRUGS (10)
  1. MESALAMINE. [Concomitant]
     Active Substance: MESALAMINE
     Indication: CROHN^S DISEASE
     Dosage: 400 MG, UNK
     Route: 065
  2. BUDESONIDE ALMUS [Concomitant]
     Indication: CROHN^S DISEASE
     Dosage: 3 MG, TID
  3. AZATHIOPRINE                       /00001502/ [Concomitant]
     Active Substance: AZATHIOPRINE
     Indication: CROHN^S DISEASE
     Dosage: 37.5 MG, UNK
     Route: 065
  4. PREDNISONE                         /00044702/ [Concomitant]
     Active Substance: PREDNISONE
     Indication: CROHN^S DISEASE
     Dosage: 40 MG, UNK
     Route: 065
  5. URSODEOXYCHOLIC ACID UNK [Suspect]
     Active Substance: URSODIOL
     Indication: HEPATITIS CHOLESTATIC
     Route: 065
  6. URSODEOXYCHOLIC ACID UNK [Suspect]
     Active Substance: URSODIOL
     Indication: PRURITUS
  7. RIFAMPIN. [Concomitant]
     Active Substance: RIFAMPIN
     Indication: HEPATITIS CHOLESTATIC
     Route: 065
  8. RIFAMPIN. [Concomitant]
     Active Substance: RIFAMPIN
     Indication: PRURITUS
  9. TACROLIMUS ACCORD [Concomitant]
     Active Substance: TACROLIMUS
     Indication: CROHN^S DISEASE
     Dosage: 1 MG, QD
     Route: 065
  10. AZATHIOPRINE                       /00001502/ [Concomitant]
     Active Substance: AZATHIOPRINE
     Dosage: 75 MG, UNK
     Route: 065

REACTIONS (16)
  - Liver transplant [Unknown]
  - Diarrhoea haemorrhagic [Unknown]
  - Transplant rejection [Unknown]
  - Drug ineffective for unapproved indication [Unknown]
  - Vomiting [Unknown]
  - Transaminases increased [Unknown]
  - Ileal operation [Unknown]
  - Chromaturia [Unknown]
  - Pyrexia [Unknown]
  - Off label use [Unknown]
  - Upper respiratory tract infection [Unknown]
  - Weight decreased [Unknown]
  - Abdominal pain [Unknown]
  - Intestinal anastomosis [Unknown]
  - Diarrhoea [Unknown]
  - Pruritus [Recovered/Resolved]
